FAERS Safety Report 8448734-6 (Version None)
Quarter: 2012Q2

REPORT INFORMATION
  Report Type: 
  Country: None (occurrence: None)
  Receive Date: 20120613
  Receipt Date: 20120611
  Transmission Date: 20120825
  Serious: Yes (Other)
  Sender: FDA-Public Use
  Company Number: ADR-2012-00955

PATIENT

DRUGS (1)
  1. BACLOFEN [Suspect]

REACTIONS (1)
  - IMPLANT SITE EFFUSION [None]
